FAERS Safety Report 9331971 (Version 1)
Quarter: 2013Q2

REPORT INFORMATION
  Report Type: Spontaneous
  Country: US (occurrence: None)
  Receive Date: 20130603
  Receipt Date: 20130603
  Transmission Date: 20140414
  Serious: Yes (Congenital Anomaly, Other)
  Sender: FDA-Public Use
  Company Number: 2013P1006384

PATIENT
  Sex: Male

DRUGS (1)
  1. LITHIUM [Suspect]

REACTIONS (13)
  - Maternal drugs affecting foetus [None]
  - Premature baby [None]
  - Congenital tricuspid valve incompetence [None]
  - Cardiomegaly [None]
  - Ductus arteriosus premature closure [None]
  - Caesarean section [None]
  - Cyanosis neonatal [None]
  - Neonatal hypotension [None]
  - Hypoperfusion [None]
  - Metabolic acidosis [None]
  - Atrial septal defect [None]
  - Foetal heart rate deceleration [None]
  - Foetal non-stress test abnormal [None]
